FAERS Safety Report 15724394 (Version 2)
Quarter: 2019Q1

REPORT INFORMATION
  Report Type: Spontaneous
  Country: US (occurrence: US)
  Receive Date: 20181214
  Receipt Date: 20190107
  Transmission Date: 20190417
  Serious: Yes (Hospitalization, Other)
  Sender: FDA-Public Use
  Company Number: US-JAZZ-2018-US-017925

PATIENT
  Age: 58 Year
  Sex: Male

DRUGS (1)
  1. XYREM [Suspect]
     Active Substance: SODIUM OXYBATE
     Indication: SEIZURE
     Route: 048

REACTIONS (8)
  - Mental disorder [Unknown]
  - Hypertension [Recovered/Resolved]
  - Depressed level of consciousness [Unknown]
  - Electrocardiogram QT prolonged [Unknown]
  - Tachycardia [Recovered/Resolved]
  - Irritability [Recovered/Resolved]
  - Suicide attempt [Unknown]
  - Agitation [Recovered/Resolved]

NARRATIVE: CASE EVENT DATE: 20181101
